FAERS Safety Report 21447278 (Version 1)
Quarter: 2022Q4

REPORT INFORMATION
  Report Type: Spontaneous
  Country: DE (occurrence: DE)
  Receive Date: 20221012
  Receipt Date: 20221012
  Transmission Date: 20230113
  Serious: Yes (Death, Life-Threatening, Hospitalization, Other)
  Sender: FDA-Public Use
  Company Number: DE-ADRED-07530-01

PATIENT
  Age: 89 Year
  Sex: Female
  Weight: 60 kg

DRUGS (17)
  1. FENTANYL [Suspect]
     Active Substance: FENTANYL
     Indication: Product used for unknown indication
     Dosage: 37.5 UG, CHANGE EVERY 3 DAYS,
     Route: 062
  2. CERTOPARIN SODIUM [Suspect]
     Active Substance: CERTOPARIN SODIUM
     Indication: Product used for unknown indication
     Dosage: 3000 IU (INTERNATIONAL UNIT) DAILY; 0-0-1-0,  PROPHYLAXIS SAFETY SYRINGE,UNIT DOSE AND STRENGTH  : 3
  3. EDOXABAN [Suspect]
     Active Substance: EDOXABAN
     Indication: Product used for unknown indication
     Dosage: 30 MG, PAUSED
     Route: 065
  4. QUETIAPINE [Concomitant]
     Active Substance: QUETIAPINE
     Indication: Product used for unknown indication
     Dosage: 50 MILLIGRAM DAILY;  0-0-2-0, UNIT DOSE : 50 MG, FREQUENCY ; 1 , FREQUENCY TIME : 1 DAYS,
  5. QUETIAPINE [Concomitant]
     Active Substance: QUETIAPINE
     Dosage: 100 MILLIGRAM DAILY; 0-0-2-0, UNIT DOSE : 100 MG, FREQUENCY ; 1 , FREQUENCY TIME : 1 DAYS,
  6. QUETIAPINE [Concomitant]
     Active Substance: QUETIAPINE
     Dosage: 100 MILLIGRAM DAILY;  0-0-1-1, UNIT DOSE : 50 MG, FREQUENCY ; 2 , FREQUENCY TIME : 1 DAYS,
  7. METFORMIN [Concomitant]
     Active Substance: METFORMIN HYDROCHLORIDE
     Indication: Product used for unknown indication
     Dosage: 1000 MILLIGRAM DAILY; 1-0-1-0, UNIT DOSE : 500 MG, FREQUENCY ; 2 , FREQUENCY TIME : 1 DAYS,
  8. FUROSEMIDE [Concomitant]
     Active Substance: FUROSEMIDE
     Indication: Product used for unknown indication
     Dosage: 20 MILLIGRAM DAILY;  1-0-0-0, UNIT DOSE : 20 MG, FREQUENCY ; 1 , FREQUENCY TIME : 1 DAYS,
  9. ACETYLCYSTEINE [Concomitant]
     Active Substance: ACETYLCYSTEINE
     Indication: Product used for unknown indication
     Dosage: 600 MILLIGRAM DAILY;  1-0-0-0, UNIT DOSE : 600 MG, FREQUENCY ; 1 , FREQUENCY TIME : 1 DAYS,
  10. PRAMIPEXOLE [Concomitant]
     Active Substance: PRAMIPEXOLE
     Indication: Product used for unknown indication
     Dosage: 1.76 MILLIGRAM DAILY; 1-0-1-0, UNIT DOSE : 0.88 MG, FREQUENCY ; 2 , FREQUENCY TIME : 1 DAYS,
  11. PANTOPRAZOLE SODIUM [Concomitant]
     Active Substance: PANTOPRAZOLE SODIUM
     Indication: Product used for unknown indication
     Dosage: 40 MILLIGRAM DAILY;  1-0-1-0, UNIT DOSE : 20 MG, FREQUENCY ; 2 , FREQUENCY TIME : 1 DAYS,
  12. CHOLECALCIFEROL [Concomitant]
     Active Substance: CHOLECALCIFEROL
     Indication: Product used for unknown indication
     Dosage: 2000 IU, 1X WEEKLY
  13. MOVICOL [Concomitant]
     Active Substance: POLYETHYLENE GLYCOL 3350\POTASSIUM CHLORIDE\SODIUM BICARBONATE\SODIUM CHLORIDE
     Indication: Product used for unknown indication
     Dosage: FREQUENCY : 3 , FREQUENCY TIME : 1 WEEKS
  14. RAMIPRIL [Concomitant]
     Active Substance: RAMIPRIL
     Indication: Product used for unknown indication
     Dosage: 5 MILLIGRAM DAILY; 1-0-0-0, UNIT DOSE : 5 MG, FREQUENCY ; 1 , FREQUENCY TIME : 1 DAYS,
  15. METAMIZOL [Concomitant]
     Active Substance: METAMIZOLE SODIUM
     Indication: Product used for unknown indication
     Dosage: 500 MILLIGRAM DAILY; 0-0-1-0, UNIT DOSE : 500 MG, FREQUENCY ; 1 , FREQUENCY TIME : 1 DAYS,
  16. GLYCOPYRRONIUM\INDACATEROL [Concomitant]
     Active Substance: GLYCOPYRRONIUM\INDACATEROL
     Indication: Product used for unknown indication
     Dosage: 1 DOSAGE FORMS DAILY; 85|43 MICROGRAM, 1-0-0-0, UNIT DOSE : 1 DOSAGE FORMS, FREQUENCY ; 1 , FREQUENC
  17. FOLIC ACID [Concomitant]
     Active Substance: FOLIC ACID
     Indication: Product used for unknown indication
     Dosage: .4 MILLIGRAM DAILY; 1-0-0-0, UNIT DOSE :  0.4 MG, FREQUENCY ; 1 , FREQUENCY TIME : 1 DAYS,

REACTIONS (5)
  - Acute respiratory failure [Fatal]
  - Fall [Unknown]
  - Fall [Unknown]
  - Fracture [Unknown]
  - Loss of consciousness [Unknown]
